FAERS Safety Report 15104446 (Version 1)
Quarter: 2018Q3

REPORT INFORMATION
  Report Type: Spontaneous
  Country: SE (occurrence: SE)
  Receive Date: 20180703
  Receipt Date: 20180703
  Transmission Date: 20181010
  Serious: Yes (Death)
  Sender: FDA-Public Use
  Company Number: SE-FRESENIUS KABI-FK201807443

PATIENT
  Age: 30 Year
  Sex: Female
  Weight: 106 kg

DRUGS (4)
  1. SALINE [Concomitant]
     Active Substance: SODIUM CHLORIDE
     Indication: TOXICITY TO VARIOUS AGENTS
     Route: 040
  2. PARACETAMOL [Concomitant]
     Active Substance: ACETAMINOPHEN
     Indication: PRODUCT USED FOR UNKNOWN INDICATION
  3. ALCOHOL. [Concomitant]
     Active Substance: ALCOHOL
     Indication: PRODUCT USED FOR UNKNOWN INDICATION
  4. ACETYLCYSTEINE (MANUFACTURER UNKNOWN) [Suspect]
     Active Substance: ACETYLCYSTEINE
     Indication: TOXICITY TO VARIOUS AGENTS
     Route: 040

REACTIONS (3)
  - Dose calculation error [Fatal]
  - Anaphylactic shock [Fatal]
  - Accidental overdose [Fatal]
